FAERS Safety Report 19854809 (Version 1)
Quarter: 2021Q3

REPORT INFORMATION
  Report Type: Spontaneous
  Country: US (occurrence: US)
  Receive Date: 20210917
  Receipt Date: 20210917
  Transmission Date: 20211014
  Serious: Yes (Other)
  Sender: FDA-Public Use
  Company Number: None

PATIENT
  Sex: Female

DRUGS (18)
  1. VIT D [Concomitant]
     Active Substance: VITAMIN D NOS
  2. ATOVASTATIN [Concomitant]
     Active Substance: ATORVASTATIN
  3. OMEPRAZOLE. [Concomitant]
     Active Substance: OMEPRAZOLE
  4. CARVEDILOL. [Concomitant]
     Active Substance: CARVEDILOL
  5. LOVASTATIN. [Concomitant]
     Active Substance: LOVASTATIN
  6. PREDNISONE. [Concomitant]
     Active Substance: PREDNISONE
  7. HUMIRA [Suspect]
     Active Substance: ADALIMUMAB
     Indication: RHEUMATOID ARTHRITIS
     Dosage: ?          OTHER FREQUENCY:Q 2 WKS;?
     Route: 058
     Dates: start: 20191212
  8. GAMUNEX?C [Suspect]
     Active Substance: HUMAN IMMUNOGLOBULIN G
     Indication: IMMUNODEFICIENCY COMMON VARIABLE
     Dosage: ?          OTHER FREQUENCY:QM;?
     Route: 042
     Dates: start: 20191220
  9. LISINOPRIL. [Concomitant]
     Active Substance: LISINOPRIL
  10. TIZANIDINE. [Concomitant]
     Active Substance: TIZANIDINE
  11. ZOLPIDEM [Concomitant]
     Active Substance: ZOLPIDEM TARTRATE
  12. ASPIRIN. [Concomitant]
     Active Substance: ASPIRIN
  13. HDROXYCHLOR [Concomitant]
  14. LISINOPRIL/HCTZ [Concomitant]
     Active Substance: HYDROCHLOROTHIAZIDE\LISINOPRIL
  15. BRILINTA [Concomitant]
     Active Substance: TICAGRELOR
  16. FOLIC ACID. [Concomitant]
     Active Substance: FOLIC ACID
  17. METHOTREXATE. [Concomitant]
     Active Substance: METHOTREXATE
  18. VENLAFAXINE [Concomitant]
     Active Substance: VENLAFAXINE HYDROCHLORIDE

REACTIONS (2)
  - Myocardial infarction [None]
  - Condition aggravated [None]
